FAERS Safety Report 12218640 (Version 2)
Quarter: 2016Q2

REPORT INFORMATION
  Report Type: Spontaneous
  Country: GD (occurrence: GD)
  Receive Date: 20160329
  Receipt Date: 20160415
  Transmission Date: 20160815
  Serious: Yes (Other)
  Sender: FDA-Public Use
  Company Number: GD-JNJFOC-20160326097

PATIENT
  Sex: Female

DRUGS (4)
  1. IDELALISIB [Concomitant]
     Active Substance: IDELALISIB
     Route: 065
  2. RITUXIMAB [Concomitant]
     Active Substance: RITUXIMAB
     Route: 065
  3. IMBRUVICA [Suspect]
     Active Substance: IBRUTINIB
     Indication: CHRONIC LYMPHOCYTIC LEUKAEMIA
     Dosage: STOPPED IN EARLY FEB-2016
     Route: 048
     Dates: end: 201602
  4. IMBRUVICA [Suspect]
     Active Substance: IBRUTINIB
     Indication: CHRONIC LYMPHOCYTIC LEUKAEMIA
     Route: 048
     Dates: start: 201603

REACTIONS (7)
  - Thrombocytopenia [Not Recovered/Not Resolved]
  - Anaemia [Not Recovered/Not Resolved]
  - Intestinal obstruction [Recovered/Resolved]
  - Drug ineffective [Unknown]
  - Retroperitoneal lymphadenopathy [Unknown]
  - Pneumocystis jirovecii pneumonia [Unknown]
  - Bone marrow infiltration [Unknown]

NARRATIVE: CASE EVENT DATE: 20160321
